FAERS Safety Report 4395559-7 (Version None)
Quarter: 2004Q3

REPORT INFORMATION
  Report Type: 
  Country: None (occurrence: None)
  Receive Date: 20040707
  Receipt Date: 20040702
  Transmission Date: 20050211
  Serious: Yes (Hospitalization)
  Sender: FDA-Public Use
  Company Number: 200412115GDS

PATIENT
  Age: 51 Year
  Sex: Female

DRUGS (7)
  1. ASPIRIN [Suspect]
     Indication: PROPHYLAXIS
     Dosage: 100 MG QD, ORAL
     Route: 048
  2. HUMAN INSULI (INSULIN HUMAN) [Suspect]
     Indication: DIABETES MELLITUS NON-INSULIN-DEPENDENT
     Dosage: SUBCUTANEOUS
     Route: 058
     Dates: end: 20040620
  3. INSULIN [Suspect]
     Indication: DIABETES MELLITUS NON-INSULIN-DEPENDENT
     Dosage: SUBCUTANEOUS
     Route: 058
     Dates: end: 20040620
  4. METFORMIN HCL [Suspect]
     Indication: DIABETES MELLITUS NON-INSULIN-DEPENDENT
     Dosage: 500 MG, TOTAL DAILY, ORAL
     Route: 048
     Dates: end: 20040620
  5. ACIPIMOX [Concomitant]
  6. FERRUM [Concomitant]
  7. FOLIC ACID [Concomitant]

REACTIONS (1)
  - HYPOGLYCAEMIA [None]
